FAERS Safety Report 10209550 (Version 4)
Quarter: 2014Q3

REPORT INFORMATION
  Report Type: Report from Study
  Country: AU (occurrence: AU)
  Receive Date: 20140602
  Receipt Date: 20140807
  Transmission Date: 20150326
  Serious: Yes (Hospitalization)
  Sender: FDA-Public Use
  Company Number: PHHY2014AU056221

PATIENT
  Age: 66 Year
  Sex: Female

DRUGS (29)
  1. CALCIUM FOLINATE [Suspect]
     Active Substance: LEUCOVORIN CALCIUM
     Dosage: 315 MG, UNK
     Route: 042
     Dates: start: 20130807
  2. ATROPINE SULFATE. [Concomitant]
     Active Substance: ATROPINE SULFATE
     Indication: CHOLINERGIC SYNDROME
     Dosage: 4 MG, UNK
     Route: 058
     Dates: start: 20130726, end: 20130807
  3. HEPARIN [Concomitant]
     Active Substance: HEPARIN SODIUM
     Indication: THROMBOSIS PROPHYLAXIS
     Dosage: 5000 IU, UNK
     Route: 058
     Dates: start: 20130814, end: 20130823
  4. ONDANSETRON [Concomitant]
     Active Substance: ONDANSETRON
     Indication: PROPHYLAXIS OF NAUSEA AND VOMITING
     Dosage: 8 MG, UNK
     Route: 048
     Dates: start: 20130727, end: 20130809
  5. LIPITOR [Concomitant]
     Active Substance: ATORVASTATIN CALCIUM
     Indication: HYPERCHOLESTEROLAEMIA
     Dosage: 40 MG, UNK
     Route: 048
  6. ACICLOVIR [Concomitant]
     Active Substance: ACYCLOVIR
     Dosage: 5 %, UNK
     Route: 061
     Dates: start: 20130819, end: 20130823
  7. PARACETAMOL [Concomitant]
     Active Substance: ACETAMINOPHEN
     Indication: PROPHYLAXIS
     Dosage: 1 G, UNK
     Route: 048
     Dates: start: 20130726, end: 20130807
  8. ONDANSETRON [Concomitant]
     Active Substance: ONDANSETRON
     Dosage: 4 MG, UNK
     Route: 048
     Dates: start: 20130822, end: 20130822
  9. POLYTEARS [Concomitant]
     Indication: DRY EYE
     Dosage: 2 DF, UNK
     Route: 047
     Dates: start: 20130821, end: 20130823
  10. IRINOTECAN [Suspect]
     Active Substance: IRINOTECAN
     Indication: COLORECTAL CANCER METASTATIC
     Dosage: 280 MG, UNK
     Route: 042
     Dates: start: 20130726
  11. GENTAMYCIN [Concomitant]
     Active Substance: GENTAMICIN
     Indication: INFECTION
     Dosage: 240 MG, UNK
     Route: 042
     Dates: start: 20130814, end: 20130814
  12. SLOW K [Concomitant]
     Active Substance: POTASSIUM CHLORIDE
     Indication: HYPOKALAEMIA
     Dosage: 16 OT, UNK
     Route: 048
     Dates: start: 20130819, end: 20130823
  13. PHENERGAN [Concomitant]
     Active Substance: PROMETHAZINE HYDROCHLORIDE
     Indication: PROPHYLAXIS
     Dosage: 12.5 MG, UNK
     Route: 042
     Dates: start: 20130726, end: 20130807
  14. NILSTAT [Concomitant]
     Active Substance: NYSTATIN
     Indication: MUCOSAL INFLAMMATION
     Dosage: 1 ML, UNK
     Route: 048
     Dates: start: 20130820, end: 20130821
  15. CHLORVESCENT [Concomitant]
     Active Substance: POTASSIUM CHLORIDE
  16. VISCOTEARS [Concomitant]
     Active Substance: CARBOMER
  17. CALCIUM FOLINATE [Suspect]
     Active Substance: LEUCOVORIN CALCIUM
     Indication: COLORECTAL CANCER METASTATIC
     Dosage: 315 MG, UNK
     Route: 042
     Dates: start: 20130726
  18. DEXAMETHASONE. [Concomitant]
     Active Substance: DEXAMETHASONE
     Indication: PROPHYLAXIS OF NAUSEA AND VOMITING
     Dosage: 8 MG, UNK
     Route: 042
     Dates: start: 20130726, end: 20130807
  19. DEXAMETHASONE. [Concomitant]
     Active Substance: DEXAMETHASONE
     Dosage: 4 MG, UNK
     Route: 048
     Dates: start: 20130727, end: 20130809
  20. GRANISETRON [Concomitant]
     Active Substance: GRANISETRON
     Indication: PROPHYLAXIS OF NAUSEA AND VOMITING
     Dosage: 3 MG, UNK
     Route: 042
     Dates: start: 20130726, end: 20130807
  21. HYDROCORTISONE. [Concomitant]
     Active Substance: HYDROCORTISONE
     Indication: DERMATITIS ACNEIFORM
     Dosage: 1 %, UNK
     Route: 061
     Dates: start: 20130815, end: 20130823
  22. CHLORHEXIDINE [Concomitant]
     Active Substance: CHLORHEXIDINE
     Indication: MUCOSAL INFLAMMATION
     Dosage: 10 ML, UNK
     Route: 048
     Dates: start: 20130820, end: 20130823
  23. IRINOTECAN [Suspect]
     Active Substance: IRINOTECAN
     Dosage: 280 MG, UNK
     Route: 042
     Dates: start: 20130807
  24. PARACETAMOL [Concomitant]
     Active Substance: ACETAMINOPHEN
     Indication: PAIN
     Dosage: 1 G, UNK
     Route: 048
     Dates: start: 20130814, end: 20130816
  25. ACICLOVIR [Concomitant]
     Active Substance: ACYCLOVIR
     Indication: DERMATITIS ACNEIFORM
     Dosage: 5 %, UNK
     Route: 061
     Dates: start: 20130816, end: 20130819
  26. OMEPRAZOLE. [Concomitant]
     Active Substance: OMEPRAZOLE
     Indication: GASTROOESOPHAGEAL REFLUX DISEASE
     Dosage: 20 MG, UNK
  27. 5-FLUOROURACIL [Suspect]
     Active Substance: FLUOROURACIL
     Indication: COLORECTAL CANCER METASTATIC
     Dosage: 4400 MG, UNK
     Route: 042
     Dates: start: 20130726
  28. 5-FLUOROURACIL [Suspect]
     Active Substance: FLUOROURACIL
     Dosage: 4400 MG, UNK
     Route: 042
     Dates: start: 20130807
  29. PIPERACILLIN AND TAZOBACTAM [Concomitant]
     Active Substance: PIPERACILLIN SODIUM\TAZOBACTAM SODIUM

REACTIONS (3)
  - Vomiting [Recovered/Resolved]
  - Diarrhoea [Recovered/Resolved]
  - Neutropenia [Recovered/Resolved]

NARRATIVE: CASE EVENT DATE: 20130811
